FAERS Safety Report 7002826-7 (Version None)
Quarter: 2010Q3

REPORT INFORMATION
  Report Type: 
  Country: None (occurrence: None)
  Receive Date: 20100920
  Receipt Date: 20100325
  Transmission Date: 20110219
  Serious: No
  Sender: FDA-Public Use
  Company Number: US-ASTRAZENECA-2009SE10909

PATIENT
  Age: 68 Year
  Sex: Female
  Weight: 78 kg

DRUGS (14)
  1. SEROQUEL [Suspect]
     Indication: INSOMNIA
     Route: 048
     Dates: start: 20060101
  2. SEROQUEL [Suspect]
     Indication: BIPOLAR DISORDER
     Route: 048
     Dates: start: 20060101
  3. SEROQUEL [Suspect]
     Route: 048
  4. SEROQUEL [Suspect]
     Route: 048
  5. SEROQUEL [Suspect]
     Route: 048
  6. SEROQUEL [Suspect]
     Route: 048
  7. SEROQUEL [Suspect]
     Route: 048
  8. SEROQUEL [Suspect]
     Route: 048
  9. SEROQUEL [Suspect]
     Route: 048
     Dates: start: 20090701
  10. SEROQUEL [Suspect]
     Route: 048
     Dates: start: 20090701
  11. FOSAMAX [Concomitant]
     Indication: OSTEOPOROSIS
  12. NEXIUM [Concomitant]
     Indication: GASTROOESOPHAGEAL REFLUX DISEASE
     Route: 048
  13. DITROPAN [Concomitant]
     Indication: HYPERTONIC BLADDER
  14. KLONOPIN [Concomitant]

REACTIONS (7)
  - DEPRESSIVE SYMPTOM [None]
  - DRUG INEFFECTIVE FOR UNAPPROVED INDICATION [None]
  - EATING DISORDER [None]
  - INSOMNIA [None]
  - MALAISE [None]
  - SOMNOLENCE [None]
  - WEIGHT DECREASED [None]
